FAERS Safety Report 8872490 (Version 3)
Quarter: 2012Q4

REPORT INFORMATION
  Report Type: 
  Country: US (occurrence: None)
  Receive Date: 20121031
  Receipt Date: 20121127
  Transmission Date: 20130627
  Serious: Yes (Death, Life-Threatening, Hospitalization, Other)
  Sender: FDA-Public Use
  Company Number: None

PATIENT
  Age: 68 Year
  Sex: Male
  Weight: 72.58 kg

DRUGS (2)
  1. CARDIOPLEGIA SOLUTION [Suspect]
  2. CARDIOPLEGIA SOLUTION [Suspect]

REACTIONS (3)
  - Product quality issue [None]
  - Fungal infection [None]
  - Post procedural infection [None]
